FAERS Safety Report 7178338-7 (Version None)
Quarter: 2010Q4

REPORT INFORMATION
  Report Type: 
  Country: None (occurrence: None)
  Receive Date: 20101220
  Receipt Date: 20101207
  Transmission Date: 20110411
  Serious: Yes (Other)
  Sender: FDA-Public Use
  Company Number: DE-WATSON-2010-15940

PATIENT
  Age: 28 Year
  Sex: Male

DRUGS (2)
  1. LEVETIRACETAM [Suspect]
     Indication: EPILEPSY
     Dosage: 3000 MG, DAILY
  2. VALPROIC ACID [Suspect]
     Indication: EPILEPSY
     Dosage: 2000 MG, DAILY

REACTIONS (3)
  - MEMORY IMPAIRMENT [None]
  - MYOCLONIC EPILEPSY [None]
  - PSYCHOMOTOR RETARDATION [None]
